FAERS Safety Report 16951565 (Version 1)
Quarter: 2019Q4

REPORT INFORMATION
  Report Type: Spontaneous
  Country: US (occurrence: US)
  Receive Date: 20191023
  Receipt Date: 20191023
  Transmission Date: 20200122
  Serious: No
  Sender: FDA-Public Use
  Company Number: US-HORIZON-PRE-0451-2019

PATIENT
  Age: 81 Year
  Sex: Female
  Weight: 77.56 kg

DRUGS (3)
  1. PREDNISONE. [Suspect]
     Active Substance: PREDNISONE
     Indication: MYALGIA
  2. TYVASO [Suspect]
     Active Substance: TREPROSTINIL
     Indication: PULMONARY ARTERIAL HYPERTENSION
     Dosage: 3-9 BREATHS INHALED QID
     Dates: start: 20190716
  3. FLEXERIL [Suspect]
     Active Substance: CYCLOBENZAPRINE HYDROCHLORIDE
     Indication: MYALGIA

REACTIONS (6)
  - Drug ineffective [Unknown]
  - Arthralgia [Unknown]
  - Oropharyngeal discomfort [Unknown]
  - Fluid retention [Unknown]
  - Cough [Unknown]
  - Dyspnoea [Recovering/Resolving]
